FAERS Safety Report 4830915-1 (Version None)
Quarter: 2005Q4

REPORT INFORMATION
  Report Type: 
  Country: None (occurrence: None)
  Receive Date: 20051114
  Receipt Date: 20051103
  Transmission Date: 20060501
  Serious: Yes (Other)
  Sender: FDA-Public Use
  Company Number: FR_051107426

PATIENT
  Age: 71 Year
  Sex: Female

DRUGS (9)
  1. FORTEO [Suspect]
     Indication: OSTEOPOROSIS
     Dosage: 20 UG DAY
     Dates: start: 20050518
  2. TEGRETOL [Concomitant]
  3. MODOPAR [Concomitant]
  4. PLAQUENIL (HYDROCHLORIDDE SULFATE) [Concomitant]
  5. MOTILIUM (DOMEPERIDONE MALEATE) [Concomitant]
  6. VALIUM [Concomitant]
  7. NORMISON (TEMAZEPAM) [Concomitant]
  8. SINTROM [Concomitant]
  9. VASTAREL (TRIMETAZIDINE HYDROCHLORIDE) [Concomitant]

REACTIONS (1)
  - HERPES ZOSTER [None]
